FAERS Safety Report 7867720-8 (Version None)
Quarter: 2011Q4

REPORT INFORMATION
  Report Type: 
  Country: None (occurrence: None)
  Receive Date: 20111028
  Receipt Date: 20111026
  Transmission Date: 20120403
  Serious: Yes (Life-Threatening, Hospitalization)
  Sender: FDA-Public Use
  Company Number: FR-PFIZER INC-2011260933

PATIENT
  Age: 78 Year
  Sex: Female

DRUGS (10)
  1. RABEPRAZOLE SODIUM [Concomitant]
     Dosage: 20 MG, 2X/DAY
  2. NICARDIPINE HCL [Concomitant]
     Dosage: 50 MG, 2X/DAY
  3. FERROUS SULFATE TAB [Concomitant]
     Dosage: 1 DF, 2X/DAY
  4. DAFLON [Concomitant]
     Dosage: 500 MG, 6 TIMES PER DAY
  5. ACETAMINOPHEN [Concomitant]
     Dosage: UNK
  6. FENOFIBRATE [Concomitant]
     Dosage: 200 MG DAILY
  7. UVEDOSE [Concomitant]
     Dosage: 1 VIAL EVERY 15 DAYS
  8. IRBESARTAN AND HYDROCHLOROTHIAZIDE [Concomitant]
     Dosage: 300 MG DAILY
  9. ATARAX [Concomitant]
     Dosage: 25 MG DAILY
  10. ARTHROTEC [Suspect]
     Indication: OSTEOARTHRITIS
     Dosage: 0.2 MG/50 MG DAILY
     Route: 048
     Dates: start: 20110902, end: 20111005

REACTIONS (3)
  - ANAEMIA [None]
  - RENAL FAILURE ACUTE [None]
  - SHOCK HAEMORRHAGIC [None]
